FAERS Safety Report 12637777 (Version 1)
Quarter: 2016Q3

REPORT INFORMATION
  Report Type: Spontaneous
  Country: US (occurrence: US)
  Receive Date: 20160809
  Receipt Date: 20160809
  Transmission Date: 20161109
  Serious: No
  Sender: FDA-Public Use
  Company Number: US-ABBVIE-15P-163-1495466-00

PATIENT
  Age: 27 Year
  Sex: Female
  Weight: 51.76 kg

DRUGS (3)
  1. DEPAKOTE [Suspect]
     Active Substance: DIVALPROEX SODIUM
     Indication: MANIA
     Route: 048
     Dates: start: 2015, end: 201509
  2. BIRTH CONTROL PILL [Concomitant]
     Active Substance: UNSPECIFIED INGREDIENT
     Indication: PRODUCT USED FOR UNKNOWN INDICATION
  3. DEPAKOTE [Suspect]
     Active Substance: DIVALPROEX SODIUM
     Route: 048
     Dates: start: 201507

REACTIONS (3)
  - Drug ineffective [Recovered/Resolved]
  - Depression [Recovered/Resolved]
  - Weight increased [Recovered/Resolved]

NARRATIVE: CASE EVENT DATE: 201507
